FAERS Safety Report 5202278-3 (Version None)
Quarter: 2007Q1

REPORT INFORMATION
  Report Type: 
  Country: None (occurrence: None)
  Receive Date: 20070109
  Receipt Date: 20070102
  Transmission Date: 20070707
  Serious: Yes (Other)
  Sender: FDA-Public Use
  Company Number: GB-GLAXOSMITHKLINE-B0453122A

PATIENT
  Age: 48 Year
  Sex: Female

DRUGS (7)
  1. AMOXICILLIN [Suspect]
     Indication: DRUG USE FOR UNKNOWN INDICATION
     Dates: start: 20061011
  2. INFLUENZA VACCINE [Suspect]
     Indication: DRUG USE FOR UNKNOWN INDICATION
     Route: 030
     Dates: start: 20061007, end: 20061007
  3. HYDROXYZINE [Concomitant]
     Indication: URTICARIA
     Route: 048
     Dates: start: 20040101
  4. INSULIN GLARGINE [Concomitant]
     Indication: DRUG USE FOR UNKNOWN INDICATION
  5. NOVORAPID [Concomitant]
  6. SIMVASTATIN [Concomitant]
     Route: 048
  7. LEVOTHYROXINE SODIUM [Concomitant]
     Indication: HYPOTHYROIDISM
     Route: 048
     Dates: start: 20040101

REACTIONS (3)
  - ANOREXIA [None]
  - DIARRHOEA [None]
  - WEIGHT DECREASED [None]
